FAERS Safety Report 4614548-8 (Version None)
Quarter: 2005Q2

REPORT INFORMATION
  Report Type: 
  Country: None (occurrence: None)
  Receive Date: 20050307
  Receipt Date: 20041202
  Transmission Date: 20051028
  Serious: No
  Sender: FDA-Public Use
  Company Number: USA041184395

PATIENT
  Age: 67 Year
  Sex: Female

DRUGS (6)
  1. ALIMITA (PEMETREXED) [Suspect]
     Indication: MESOTHELIOMA
     Dates: start: 20041001
  2. CISPLATIN [Concomitant]
  3. PRILOSEC (OMEPRAZOLE RATIOPHARM) [Concomitant]
  4. FOLIC ACID [Concomitant]
  5. VITAMIN B-12 [Concomitant]
  6. DEXAMETHASONE [Concomitant]

REACTIONS (2)
  - ASTHENIA [None]
  - OESOPHAGEAL PAIN [None]
